FAERS Safety Report 18463646 (Version 2)
Quarter: 2020Q4

REPORT INFORMATION
  Report Type: Spontaneous
  Country: US (occurrence: US)
  Receive Date: 20201104
  Receipt Date: 20201105
  Transmission Date: 20210114
  Serious: Yes (Other)
  Sender: FDA-Public Use
  Company Number: US-PFIZER INC-2019439687

PATIENT
  Age: 93 Year
  Sex: Female
  Weight: 78.01 kg

DRUGS (3)
  1. PREMARIN [Suspect]
     Active Substance: ESTROGENS, CONJUGATED
     Dosage: UNK, 1X/DAY (APPLY BLUEBERRY SIZED AMOUNT AS DIRECTED NIGHTLY)
  2. PREMARIN [Suspect]
     Active Substance: ESTROGENS, CONJUGATED
     Indication: ATROPHIC VULVOVAGINITIS
     Dosage: BLUEBERRY SIZE DAILY
  3. PREMARIN [Suspect]
     Active Substance: ESTROGENS, CONJUGATED
     Dosage: 3-4 TIMES PER WEEK
     Route: 067

REACTIONS (4)
  - Oedema [Unknown]
  - Hypertension [Unknown]
  - Stress urinary incontinence [Recovered/Resolved]
  - Off label use [Unknown]
